FAERS Safety Report 5248184-X (Version None)
Quarter: 2007Q1

REPORT INFORMATION
  Report Type: 
  Country: None (occurrence: None)
  Receive Date: 20070227
  Receipt Date: 20060525
  Transmission Date: 20070707
  Serious: No
  Sender: FDA-Public Use
  Company Number: US-BRISTOL-MYERS SQUIBB COMPANY-13390679

PATIENT
  Age: 35 Year
  Sex: Male
  Weight: 204 kg

DRUGS (2)
  1. GLUCOPHAGE [Suspect]
     Indication: DIABETES MELLITUS
     Dosage: HAS BEEN TAKING GLUCOPHAGE ^FOR A WHILE^
  2. AVANDIA [Concomitant]

REACTIONS (1)
  - DIARRHOEA [None]
